FAERS Safety Report 9305501 (Version 2)
Quarter: 2013Q1

REPORT INFORMATION
  Report Type: Spontaneous
  Country: US (occurrence: None)
  Receive Date: 20121211
  Receipt Date: 20130123
  Transmission Date: 20140127
  Serious: Yes (Hospitalization, Other)
  Sender: FDA-Public Use
  Company Number: ACO_33112_2012

PATIENT
  Age: 85 Year
  Sex: Female

DRUGS (5)
  1. AMPYRA (DALFAMPRIDINE) TABLET, 10MG [Suspect]
     Indication: GAIT DISTURBANCE
     Route: 048
     Dates: start: 201211, end: 201211
  2. COPAXONE (GLATIRAMER ACETATE) [Concomitant]
  3. HYDROCHLOROTHIAZIDE W/LOSARTAN (HYDROCHLOROTHIAZIDE W/LOSARTAN) [Concomitant]
  4. ADDERALL (AMFETAMINE ASPARTATE, AMFETAMINE SULFATE, DEXAMFETAMINE SACCHARATE, DEXAMFETAMINE SULFATE) [Concomitant]
  5. ATENOLOL (ATENOLOL) [Concomitant]

REACTIONS (2)
  - Convulsion [None]
  - Aspiration [None]
